FAERS Safety Report 11782858 (Version 1)
Quarter: 2015Q4

REPORT INFORMATION
  Report Type: Spontaneous
  Country: NL (occurrence: NL)
  Receive Date: 20151127
  Receipt Date: 20151127
  Transmission Date: 20160305
  Serious: Yes (Other)
  Sender: FDA-Public Use
  Company Number: NL-TEVA-612700ISR

PATIENT
  Sex: Male

DRUGS (2)
  1. PEMETREXED [Concomitant]
     Active Substance: PEMETREXED
  2. CISPLATIN. [Suspect]
     Active Substance: CISPLATIN
     Dosage: 10 MILLIGRAM DAILY;

REACTIONS (1)
  - Arterial occlusive disease [Unknown]
